FAERS Safety Report 13894645 (Version 1)
Quarter: 2017Q3

REPORT INFORMATION
  Report Type: Spontaneous
  Country: US (occurrence: None)
  Receive Date: 20170816
  Receipt Date: 20170816
  Transmission Date: 20171127
  Serious: Yes (Hospitalization)
  Sender: FDA-Public Use
  Company Number: None

PATIENT
  Age: 23 Year
  Sex: Male

DRUGS (8)
  1. SIMVASTATIN. [Concomitant]
     Active Substance: SIMVASTATIN
  2. EPOGEN [Concomitant]
     Active Substance: ERYTHROPOIETIN
  3. AMLODIPINE [Concomitant]
     Active Substance: AMLODIPINE BESYLATE
  4. FLOVENT [Concomitant]
     Active Substance: FLUTICASONE PROPIONATE
  5. SENSIPAR [Suspect]
     Active Substance: CINACALCET HYDROCHLORIDE
     Indication: NEPHROGENIC ANAEMIA
     Route: 048
     Dates: start: 20151002
  6. CALCITRIOL. [Concomitant]
     Active Substance: CALCITRIOL
  7. RENVELA [Concomitant]
     Active Substance: SEVELAMER CARBONATE
  8. MNOXIDIL [Concomitant]

REACTIONS (1)
  - Hospitalisation [None]
